FAERS Safety Report 7371199-2 (Version None)
Quarter: 2011Q1

REPORT INFORMATION
  Report Type: 
  Country: None (occurrence: None)
  Receive Date: 20110322
  Receipt Date: 20110322
  Transmission Date: 20110831
  Serious: Yes (Life-Threatening, Hospitalization, Other)
  Sender: FDA-Public Use
  Company Number: None

PATIENT
  Sex: Female
  Weight: 81.6475 kg

DRUGS (11)
  1. DIAZEPAM [Concomitant]
  2. IVIG 160 G [Suspect]
     Indication: ARTHRITIS
     Dosage: 80 G 40 ON DAY 1 AND 2 IV
     Route: 042
     Dates: start: 20101227, end: 20101228
  3. IVIG 160 G [Suspect]
     Indication: POLYMYOSITIS
     Dosage: 80 G 40 ON DAY 1 AND 2 IV
     Route: 042
     Dates: start: 20101227, end: 20101228
  4. VICODIN [Concomitant]
  5. IMMUNE GLOBULIN INTRAVENOUS (HUMAN) [Concomitant]
  6. IMITREX [Suspect]
     Indication: HEADACHE
     Dosage: 25 MG UP TO 6/DAY PO
     Route: 048
     Dates: start: 20101227, end: 20110105
  7. MYCOPHENOLATE MEFETIL [Concomitant]
  8. IMITREX [Concomitant]
  9. FOLIC ACID [Concomitant]
  10. ERGOCALCIFEROL [Concomitant]
  11. METHOTREXATE [Concomitant]

REACTIONS (7)
  - HEADACHE [None]
  - PULMONARY EMBOLISM [None]
  - LIVEDO RETICULARIS [None]
  - PALLOR [None]
  - IMPAIRED WORK ABILITY [None]
  - SKIN DISCOLOURATION [None]
  - HAEMOLYTIC ANAEMIA [None]
